FAERS Safety Report 6843729-8 (Version None)
Quarter: 2010Q3

REPORT INFORMATION
  Report Type: 
  Country: None (occurrence: None)
  Receive Date: 20100714
  Receipt Date: 20100714
  Transmission Date: 20110219
  Serious: No
  Sender: FDA-Public Use
  Company Number: None

PATIENT
  Age: 84 Year
  Sex: Female
  Weight: 58.9676 kg

DRUGS (1)
  1. CREON [Suspect]

REACTIONS (3)
  - CHEST PAIN [None]
  - DIARRHOEA [None]
  - PRODUCT FORMULATION ISSUE [None]
